FAERS Safety Report 8219866-2 (Version None)
Quarter: 2012Q1

REPORT INFORMATION
  Report Type: 
  Country: None (occurrence: None)
  Receive Date: 20120319
  Receipt Date: 20120308
  Transmission Date: 20120608
  Serious: Yes (Hospitalization, Other)
  Sender: FDA-Public Use
  Company Number: US-ASTRAZENECA-2012SE16228

PATIENT
  Sex: Female

DRUGS (2)
  1. DENOSANMAB [Concomitant]
  2. FASLODEX [Suspect]
     Route: 030

REACTIONS (3)
  - RENAL FAILURE [None]
  - HIP FRACTURE [None]
  - HYPERCALCAEMIA [None]
